FAERS Safety Report 15183412 (Version 6)
Quarter: 2020Q4

REPORT INFORMATION
  Report Type: Spontaneous
  Country: US (occurrence: US)
  Receive Date: 20180723
  Receipt Date: 20201006
  Transmission Date: 20210113
  Serious: Yes (Other)
  Sender: FDA-Public Use
  Company Number: US-SA-2018SA198744

PATIENT

DRUGS (1)
  1. KEVZARA [Suspect]
     Active Substance: SARILUMAB
     Indication: RHEUMATOID ARTHRITIS
     Dosage: 200 MG, QOW
     Route: 058
     Dates: start: 201801

REACTIONS (6)
  - Infection [Unknown]
  - Acne [Unknown]
  - Rheumatoid arthritis [Recovering/Resolving]
  - Nasal dryness [Unknown]
  - Rhinorrhoea [Unknown]
  - Nasopharyngitis [Unknown]
